FAERS Safety Report 21942895 (Version 1)
Quarter: 2023Q1

REPORT INFORMATION
  Report Type: Spontaneous
  Country: US (occurrence: US)
  Receive Date: 20230202
  Receipt Date: 20230202
  Transmission Date: 20230418
  Serious: No
  Sender: FDA-Public Use
  Company Number: US-ICU MEDICAL, INC.-ICU2022US00032

PATIENT

DRUGS (4)
  1. STERILE WATER [Suspect]
     Active Substance: WATER
     Indication: Product used for unknown indication
     Dosage: 1000 ML, INJECTION
     Route: 065
     Dates: start: 20220427
  2. STERILE WATER [Suspect]
     Active Substance: WATER
     Dosage: 1000 ML, INJECTION
     Route: 065
     Dates: start: 20220427
  3. KENALOG [Suspect]
     Active Substance: TRIAMCINOLONE ACETONIDE
     Indication: Product used for unknown indication
     Dosage: 10 INJ MDV 10MG/ML
     Route: 065
     Dates: start: 20220427
  4. DEXTROSE [Suspect]
     Active Substance: DEXTROSE
     Indication: Product used for unknown indication
     Dosage: FTV 50ML, INJECTION
     Route: 065
     Dates: start: 20220427

REACTIONS (3)
  - Periarthritis [Recovered/Resolved]
  - Joint swelling [Recovered/Resolved]
  - Candida infection [Recovered/Resolved]

NARRATIVE: CASE EVENT DATE: 20220504
